FAERS Safety Report 14906692 (Version 1)
Quarter: 2018Q2

REPORT INFORMATION
  Report Type: Spontaneous
  Country: US (occurrence: US)
  Receive Date: 20180517
  Receipt Date: 20180517
  Transmission Date: 20180711
  Serious: No
  Sender: FDA-Public Use
  Company Number: US-SA-2017SA036127

PATIENT
  Age: 61 Year
  Sex: Male
  Weight: 71.67 kg

DRUGS (5)
  1. LANTUS [Suspect]
     Active Substance: INSULIN GLARGINE
     Indication: TYPE 2 DIABETES MELLITUS
     Dosage: DOSE-6-7 UNITS DOSE:7 UNIT(S)
     Route: 065
     Dates: start: 20060101
  2. METOPROLOL. [Concomitant]
     Active Substance: METOPROLOL
     Indication: HYPERTENSION
     Dosage: 1 PILL- 2.5 MG
     Dates: start: 20000905
  3. FUROSEMIDE. [Concomitant]
     Active Substance: FUROSEMIDE
     Indication: RENAL DISORDER
     Dosage: 2 MORN- 1 NIGHT
     Dates: start: 20140905
  4. LISINOPRIL. [Concomitant]
     Active Substance: LISINOPRIL
     Indication: RENAL DISORDER
     Dosage: 1 PILL- 2.5 MG
     Dates: start: 20140905
  5. LANTUS [Suspect]
     Active Substance: INSULIN GLARGINE
     Indication: TYPE 2 DIABETES MELLITUS
     Dosage: DOSE-6-7 UNITS DOSE:7 UNIT(S)
     Route: 065
     Dates: start: 20060101

REACTIONS (2)
  - Drug ineffective [Unknown]
  - Blood glucose increased [Unknown]
